FAERS Safety Report 14606225 (Version 1)
Quarter: 2018Q1

REPORT INFORMATION
  Report Type: Report from Study
  Country: DE (occurrence: DE)
  Receive Date: 20180307
  Receipt Date: 20180307
  Transmission Date: 20180509
  Serious: Yes (Other)
  Sender: FDA-Public Use
  Company Number: DE-BIOGEN-2018BI00511314

PATIENT
  Age: 37 Year
  Sex: Female
  Weight: 48 kg

DRUGS (1)
  1. TYSABRI [Suspect]
     Active Substance: NATALIZUMAB
     Indication: MULTIPLE SCLEROSIS
     Route: 042
     Dates: start: 20091108

REACTIONS (4)
  - Maternal exposure during pregnancy [Recovered/Resolved]
  - Haemoglobin decreased [Not Recovered/Not Resolved]
  - Ectopic pregnancy [Recovered/Resolved]
  - Red blood cell count decreased [Recovered/Resolved]

NARRATIVE: CASE EVENT DATE: 20171220
